FAERS Safety Report 23158317 (Version 4)
Quarter: 2023Q4

REPORT INFORMATION
  Report Type: Report from Study
  Country: JP (occurrence: JP)
  Receive Date: 20231108
  Receipt Date: 20231211
  Transmission Date: 20240110
  Serious: Yes (Hospitalization, Other)
  Sender: FDA-Public Use
  Company Number: JP-ALXN-A202106309

PATIENT
  Age: 49 Year
  Sex: Female
  Weight: 82 kg

DRUGS (7)
  1. ULTOMIRIS [Suspect]
     Active Substance: RAVULIZUMAB-CWVZ
     Indication: Paroxysmal nocturnal haemoglobinuria
     Dosage: 2700 MG, SINGLE
     Route: 042
     Dates: start: 20191112, end: 20191125
  2. ULTOMIRIS [Suspect]
     Active Substance: RAVULIZUMAB-CWVZ
     Dosage: 3300 MILLIGRAM, Q56
     Route: 042
     Dates: start: 20191126
  3. ULTOMIRIS [Suspect]
     Active Substance: RAVULIZUMAB-CWVZ
     Indication: Paroxysmal nocturnal haemoglobinuria
     Dosage: 3300 MILLIGRAM/KILOGRAM, Q56
     Route: 042
     Dates: start: 20220426, end: 20230714
  4. SOLIRIS [Suspect]
     Active Substance: ECULIZUMAB
     Indication: Paroxysmal nocturnal haemoglobinuria
     Dosage: 900 MG, Q2W
     Route: 042
     Dates: start: 20100709, end: 20191029
  5. PREDONINE [Concomitant]
     Active Substance: PREDNISOLONE
     Indication: Paroxysmal nocturnal haemoglobinuria
     Dosage: 10 MG, QD
     Route: 048
  6. ALFAROL [Concomitant]
     Active Substance: ALFACALCIDOL
     Indication: Osteoporosis
     Dosage: 0.5 ?G, QD
     Route: 048
  7. TRIMEBUTINE [Concomitant]
     Active Substance: TRIMEBUTINE
     Indication: Chronic gastritis
     Dosage: 100 MG, TID
     Route: 048

REACTIONS (3)
  - Colon cancer metastatic [Not Recovered/Not Resolved]
  - Large intestine perforation [Unknown]
  - Metastases to lung [Unknown]

NARRATIVE: CASE EVENT DATE: 20200831
